FAERS Safety Report 9165800 (Version 1)
Quarter: 2013Q1

REPORT INFORMATION
  Report Type: Spontaneous
  Country: GB (occurrence: None)
  Receive Date: 20130304
  Receipt Date: 20130304
  Transmission Date: 20140127
  Serious: Yes (Other)
  Sender: FDA-Public Use
  Company Number: GER/UKI/13/0028285

PATIENT
  Age: 64 Year
  Sex: Male

DRUGS (4)
  1. LEVETIRACETAM (LEVETIRACETAM) [Suspect]
     Indication: EPILEPSY
     Route: 048
  2. PHENYTOIN (PHENYTOIN) [Suspect]
     Indication: EPILEPSY
     Dosage: STOPPED
     Route: 048
  3. MYSOLINE (PRIMIDONE) [Suspect]
     Indication: EPILEPSY
     Dosage: STOPPED
  4. CLOBAZAM (CLOBAZAM) [Concomitant]
     Indication: EPILEPSY
     Route: 048

REACTIONS (5)
  - Hypertension [None]
  - Dizziness [None]
  - Headache [None]
  - Cardiac disorder [None]
  - Toxicity to various agents [None]
